FAERS Safety Report 25214404 (Version 1)
Quarter: 2025Q2

REPORT INFORMATION
  Report Type: Spontaneous
  Country: CN (occurrence: CN)
  Receive Date: 20250418
  Receipt Date: 20250418
  Transmission Date: 20250716
  Serious: Yes (Hospitalization)
  Sender: PFIZER
  Company Number: CN-PFIZER INC-PV202500045060

PATIENT
  Age: 6 Year
  Sex: Male
  Weight: 23 kg

DRUGS (5)
  1. AZITHROMYCIN [Suspect]
     Active Substance: AZITHROMYCIN
     Indication: Bronchitis
     Dosage: 0.25 G, 1X/DAY
     Route: 048
     Dates: start: 20250325, end: 20250329
  2. BUDESONIDE [Suspect]
     Active Substance: BUDESONIDE
     Indication: Bronchitis
     Dosage: 2 ML, 2X/DAY
     Dates: start: 20250325, end: 20250329
  3. SODIUM CHLORIDE [Suspect]
     Active Substance: SODIUM CHLORIDE
     Indication: Bronchitis
     Dosage: 2 ML, 2X/DAY
     Dates: start: 20250325, end: 20250329
  4. LEVALBUTEROL HYDROCHLORIDE [Suspect]
     Active Substance: LEVALBUTEROL HYDROCHLORIDE
     Indication: Bronchitis
     Dosage: 3 ML, 2X/DAY
     Dates: start: 20250325, end: 20250329
  5. HERBALS\HOMEOPATHICS [Suspect]
     Active Substance: HERBALS\HOMEOPATHICS
     Indication: Bronchitis
     Dosage: 10 ML, 2X/DAY
     Route: 048
     Dates: start: 20250325, end: 20250329

REACTIONS (1)
  - Drug eruption [Recovered/Resolved]

NARRATIVE: CASE EVENT DATE: 20250329
